FAERS Safety Report 13994843 (Version 1)
Quarter: 2017Q3

REPORT INFORMATION
  Report Type: Spontaneous
  Country: US (occurrence: US)
  Receive Date: 20170921
  Receipt Date: 20170921
  Transmission Date: 20171128
  Serious: Yes (Other)
  Sender: FDA-Public Use
  Company Number: US-ROCHE-1994558

PATIENT
  Age: 45 Year
  Sex: Female

DRUGS (1)
  1. DIAZEPAM. [Suspect]
     Active Substance: DIAZEPAM
     Indication: HYPERVENTILATION
     Dosage: DOSE: 8 MG OVER 10 MINUTES
     Route: 042

REACTIONS (2)
  - Cardiac arrest [Recovered/Resolved]
  - Acute respiratory distress syndrome [Recovered/Resolved]
